FAERS Safety Report 8802540 (Version 1)
Quarter: 2012Q4

REPORT INFORMATION
  Report Type: 
  Country: US (occurrence: US)
  Receive Date: 20120921
  Receipt Date: 20120921
  Transmission Date: 20130627
  Serious: Yes (Other)
  Sender: FDA-Public Use
  Company Number: US-009507513-1209USA005959

PATIENT
  Age: 53 Year
  Sex: Female

DRUGS (1)
  1. SAPHRIS [Suspect]
     Dosage: 10 mg, bid,2 Doses
     Route: 048

REACTIONS (3)
  - Somnolence [Unknown]
  - Energy increased [Unknown]
  - Feeling abnormal [Unknown]
